FAERS Safety Report 9819924 (Version 1)
Quarter: 2013Q4

REPORT INFORMATION
  Report Type: Spontaneous
  Country: US (occurrence: None)
  Receive Date: 20131223
  Receipt Date: 20131223
  Transmission Date: 20140711
  Serious: No
  Sender: FDA-Public Use
  Company Number: 218065

PATIENT
  Age: 68 Year
  Sex: Male

DRUGS (4)
  1. PICATO [Suspect]
     Indication: ACTINIC KERATOSIS
     Dosage: 1 IN 1 D, ON ENTIRE FACE
     Dates: start: 20120522, end: 20120523
  2. HYDROCORTISONE (HYDROCORTISONE) [Concomitant]
  3. VASELINE (PARAFFIN SOFT) [Concomitant]
  4. PERCOCET (TYLOX) [Concomitant]

REACTIONS (7)
  - Application site erythema [None]
  - Application site burn [None]
  - Application site pain [None]
  - Application site vesicles [None]
  - Drug administration error [None]
  - Incorrect drug administration duration [None]
  - Prescribed overdose [None]
